FAERS Safety Report 12642253 (Version 2)
Quarter: 2016Q3

REPORT INFORMATION
  Report Type: Spontaneous
  Country: US (occurrence: US)
  Receive Date: 20160810
  Receipt Date: 20160906
  Transmission Date: 20161109
  Serious: No
  Sender: FDA-Public Use
  Company Number: US-PFIZER INC-2016341063

PATIENT
  Age: 56 Year
  Sex: Male

DRUGS (2)
  1. VANCOMYCIN HCL [Suspect]
     Active Substance: VANCOMYCIN HYDROCHLORIDE
     Dosage: UNK
     Route: 042
  2. PIPERACILLIN [Suspect]
     Active Substance: PIPERACILLIN
     Dosage: UNK
     Route: 042

REACTIONS (1)
  - Toxicity to various agents [Unknown]
